FAERS Safety Report 10058288 (Version 8)
Quarter: 2014Q3

REPORT INFORMATION
  Report Type: Report from Study
  Country: FR (occurrence: FR)
  Receive Date: 20140404
  Receipt Date: 20140731
  Transmission Date: 20150326
  Serious: Yes (Other)
  Sender: FDA-Public Use
  Company Number: FR-JNJFOC-20131214148

PATIENT

DRUGS (3)
  1. RISPERDAL CONSTA [Suspect]
     Active Substance: RISPERIDONE
     Indication: PRODUCT USED FOR UNKNOWN INDICATION
     Route: 042
  2. RISPERDAL [Suspect]
     Active Substance: RISPERIDONE
     Indication: PRODUCT USED FOR UNKNOWN INDICATION
     Route: 048
  3. RISPERDAL CONSTA [Suspect]
     Active Substance: RISPERIDONE
     Indication: PRODUCT USED FOR UNKNOWN INDICATION
     Route: 042

REACTIONS (16)
  - Drooling [Unknown]
  - Drug ineffective [Unknown]
  - Treatment noncompliance [Unknown]
  - Nonspecific reaction [Unknown]
  - Feeling abnormal [Unknown]
  - Delusion [Recovering/Resolving]
  - Fatigue [Recovering/Resolving]
  - Hallucination [Recovering/Resolving]
  - Dyskinesia [Recovering/Resolving]
  - Insomnia [Unknown]
  - Sleep disorder [Unknown]
  - Malaise [Unknown]
  - Drug dependence [Unknown]
  - Drug dose omission [Unknown]
  - Dry mouth [Unknown]
  - Dry throat [Unknown]
